FAERS Safety Report 8687717 (Version 3)
Quarter: 2013Q4

REPORT INFORMATION
  Report Type: Spontaneous
  Country: US (occurrence: US)
  Receive Date: 20120727
  Receipt Date: 20131101
  Transmission Date: 20140711
  Serious: No
  Sender: FDA-Public Use
  Company Number: US-009507513-2012SP023946

PATIENT
  Age: 69 Year
  Sex: Female

DRUGS (2)
  1. CLARITIN REDITABS [Suspect]
     Indication: HYPERSENSITIVITY
     Dosage: 5 MG, BID
     Route: 048
     Dates: start: 20120415
  2. CLARITIN REDITABS [Suspect]
     Indication: MEDICAL OBSERVATION
     Dosage: 5 MG, QAM
     Route: 048
     Dates: start: 20120416

REACTIONS (1)
  - Drug ineffective [Unknown]
